FAERS Safety Report 5221835-1 (Version None)
Quarter: 2007Q1

REPORT INFORMATION
  Report Type: 
  Country: None (occurrence: None)
  Receive Date: 20070129
  Receipt Date: 20070124
  Transmission Date: 20070707
  Serious: Yes (Death, Other)
  Sender: FDA-Public Use
  Company Number: US-ELI_LILLY_AND_COMPANY-US200603006781

PATIENT
  Age: 42 Year
  Sex: Male
  Weight: 136.51 kg

DRUGS (7)
  1. CLOZAPINE [Concomitant]
     Dates: start: 19960101, end: 20030101
  2. RISPERIDONE [Concomitant]
     Dates: start: 19950501, end: 19960601
  3. CLOMIPRAMINE HCL [Concomitant]
     Dates: start: 19950501, end: 20030909
  4. FLUOXETINE [Concomitant]
     Dates: start: 19950101, end: 19960101
  5. NAPROXEN [Concomitant]
     Dosage: 500 MG, 2/D
  6. ZYPREXA [Suspect]
     Dosage: 20 MG, EACH EVENING
     Dates: start: 20001201, end: 20030909
  7. ZYPREXA [Suspect]
     Dosage: 10 MG, EACH EVENING
     Route: 048
     Dates: start: 19941201, end: 19960601

REACTIONS (3)
  - DIABETES MELLITUS [None]
  - MYOCARDIAL INFARCTION [None]
  - WEIGHT INCREASED [None]
